FAERS Safety Report 21615510 (Version 1)
Quarter: 2022Q4

REPORT INFORMATION
  Report Type: Spontaneous
  Country: GB (occurrence: GB)
  Receive Date: 20221118
  Receipt Date: 20221118
  Transmission Date: 20230113
  Serious: Yes (Disabling, Other)
  Sender: FDA-Public Use
  Company Number: GB-MHRA-MED-202211130143441310-BVHLD

PATIENT
  Age: 17 Year
  Sex: Male
  Weight: 80 kg

DRUGS (1)
  1. ISOTRETINOIN [Suspect]
     Active Substance: ISOTRETINOIN
     Indication: Prophylaxis
     Dosage: (INCREASED DOSES THROUGHOUT THE REGIME)
     Route: 065
     Dates: start: 20211010, end: 20220505

REACTIONS (1)
  - Erectile dysfunction [Not Recovered/Not Resolved]
